FAERS Safety Report 7301833-4 (Version None)
Quarter: 2011Q1

REPORT INFORMATION
  Report Type: 
  Country: None (occurrence: None)
  Receive Date: 20110218
  Receipt Date: 20110217
  Transmission Date: 20110831
  Serious: Yes (Other)
  Sender: FDA-Public Use
  Company Number: D0069993A

PATIENT
  Age: 32 Month

DRUGS (1)
  1. FLUTIDE [Suspect]
     Indication: ASTHMA
     Route: 055

REACTIONS (1)
  - DIABETES MELLITUS [None]
